FAERS Safety Report 9941124 (Version 1)
Quarter: 2014Q1

REPORT INFORMATION
  Report Type: Report from Study
  Country: US (occurrence: US)
  Receive Date: 20140303
  Receipt Date: 20140303
  Transmission Date: 20141002
  Serious: No
  Sender: FDA-Public Use
  Company Number: US-ABBVIE-13P-163-1042701-00

PATIENT
  Age: 61 Year
  Sex: Male

DRUGS (2)
  1. HUMIRA PEN [Suspect]
     Indication: COLITIS ULCERATIVE
     Dates: start: 20121226
  2. PREDNISONE [Concomitant]
     Indication: COLITIS ULCERATIVE

REACTIONS (1)
  - Medication error [Not Recovered/Not Resolved]
